FAERS Safety Report 9779740 (Version 1)
Quarter: 2013Q4

REPORT INFORMATION
  Report Type: Spontaneous
  Country: US (occurrence: US)
  Receive Date: 20131223
  Receipt Date: 20131223
  Transmission Date: 20140711
  Serious: Yes (Death)
  Sender: FDA-Public Use
  Company Number: US-GLAXOSMITHKLINE-A1054308A

PATIENT
  Age: 83 Year
  Sex: Male

DRUGS (3)
  1. HYCAMTIN [Suspect]
     Indication: LUNG NEOPLASM MALIGNANT
     Route: 065
     Dates: start: 2013
  2. CHEMOTHERAPY [Concomitant]
  3. UNKNOWN [Concomitant]

REACTIONS (2)
  - Death [Fatal]
  - Drug ineffective [Unknown]
